FAERS Safety Report 5301556-7 (Version None)
Quarter: 2007Q2

REPORT INFORMATION
  Report Type: 
  Country: None (occurrence: None)
  Receive Date: 20070412
  Receipt Date: 20070402
  Transmission Date: 20071010
  Serious: Yes (Hospitalization)
  Sender: FDA-Public Use
  Company Number: GXKR2007GB03133

PATIENT
  Age: 72 Year
  Sex: Female

DRUGS (6)
  1. ASPIRIN [Suspect]
     Dosage: 75 MG, ORAL
     Route: 048
     Dates: end: 20070309
  2. WARFARIN SODIUM [Suspect]
     Indication: MITRAL VALVE REPAIR
     Dosage: 5 MG, ORAL
     Route: 048
     Dates: start: 20070224, end: 20070309
  3. ATENOLOL [Concomitant]
  4. FUROSEMIDE [Concomitant]
  5. ACETAMINOPHEN [Concomitant]
  6. SIMVASTATIN [Concomitant]

REACTIONS (3)
  - DRUG INTERACTION [None]
  - DUODENAL ULCER HAEMORRHAGE [None]
  - INTERNATIONAL NORMALISED RATIO INCREASED [None]
